FAERS Safety Report 15657044 (Version 4)
Quarter: 2020Q4

REPORT INFORMATION
  Report Type: Spontaneous
  Country: US (occurrence: US)
  Receive Date: 20181126
  Receipt Date: 20201028
  Transmission Date: 20210113
  Serious: Yes (Death, Hospitalization, Other)
  Sender: FDA-Public Use
  Company Number: US-BAYER-2018-214379

PATIENT
  Age: 78 Year
  Sex: Male

DRUGS (20)
  1. ALIQOPA [Suspect]
     Active Substance: COPANLISIB
     Indication: B-CELL LYMPHOMA
     Dosage: 60 MG
     Route: 042
     Dates: start: 20180907, end: 20180907
  2. ALIQOPA [Suspect]
     Active Substance: COPANLISIB
     Indication: B-CELL LYMPHOMA
     Dosage: 60 MG
     Route: 042
     Dates: start: 20181019, end: 20181019
  3. ALIQOPA [Suspect]
     Active Substance: COPANLISIB
     Indication: B-CELL LYMPHOMA
     Dosage: 60 MG
     Route: 042
     Dates: start: 20180819, end: 20180819
  4. ALIQOPA [Suspect]
     Active Substance: COPANLISIB
     Indication: B-CELL LYMPHOMA
     Dosage: 60 MG
     Route: 042
     Dates: start: 20180824, end: 20180824
  5. TRAMADOL. [Concomitant]
     Active Substance: TRAMADOL
  6. ALIQOPA [Suspect]
     Active Substance: COPANLISIB
     Indication: B-CELL LYMPHOMA
     Dosage: 60 MG
     Route: 042
     Dates: start: 20180920, end: 20180920
  7. ALIQOPA [Suspect]
     Active Substance: COPANLISIB
     Indication: B-CELL LYMPHOMA
     Dosage: 60 MG
     Route: 042
     Dates: start: 20181012, end: 20181012
  8. VANCOMYCIN [Concomitant]
     Active Substance: VANCOMYCIN
     Dosage: UNK
     Dates: start: 20181103
  9. COMPAZINE [PROCHLORPERAZINE EDISYLATE] [Concomitant]
     Active Substance: PROCHLORPERAZINE EDISYLATE
     Dosage: 10 MG, QID
     Route: 048
  10. AMOXICILLIN. [Concomitant]
     Active Substance: AMOXICILLIN
  11. FOLIC ACID. [Concomitant]
     Active Substance: FOLIC ACID
     Dosage: 400 MCG DAILY
     Route: 048
  12. FLAGYL [METRONIDAZOLE BENZOATE] [Concomitant]
     Active Substance: METRONIDAZOLE BENZOATE
     Dosage: UNK
     Dates: start: 20181103
  13. VITAMIN B12 [Concomitant]
     Active Substance: CYANOCOBALAMIN
     Dosage: 1 DF, QD
     Route: 048
  14. ALIQOPA [Suspect]
     Active Substance: COPANLISIB
     Indication: B-CELL LYMPHOMA
     Dosage: 60 MG
     Route: 042
     Dates: start: 20181005, end: 20181005
  15. ALIQOPA [Suspect]
     Active Substance: COPANLISIB
     Indication: B-CELL LYMPHOMA
     Dosage: 60 MG
     Route: 042
     Dates: start: 20180914, end: 20180914
  16. AMLODIPINE [Concomitant]
     Active Substance: AMLODIPINE BESYLATE
     Dosage: 1 DF, QD
     Route: 048
  17. COBALAMIN [Concomitant]
     Active Substance: COBALAMIN
  18. ALIQOPA [Suspect]
     Active Substance: COPANLISIB
     Indication: B-CELL LYMPHOMA
     Dosage: 60 MG
     Route: 042
     Dates: start: 20180810, end: 20180810
  19. FLORASTOR [LACTOBACILLUS ACIDOPHILUS] [Concomitant]
  20. ONDANSETRON [Concomitant]
     Active Substance: ONDANSETRON
     Dosage: 16 MG, QD
     Route: 048

REACTIONS (10)
  - Pseudomembranous colitis [Fatal]
  - Pyrexia [None]
  - Lactic acidosis [Fatal]
  - Oedema peripheral [None]
  - Contusion [None]
  - Colitis [Fatal]
  - Thrombocytopenia [None]
  - Scrotal oedema [None]
  - Hypotension [Fatal]
  - Diarrhoea [None]

NARRATIVE: CASE EVENT DATE: 201809
